FAERS Safety Report 8736699 (Version 3)
Quarter: 2012Q4

REPORT INFORMATION
  Report Type: 
  Country: US (occurrence: US)
  Receive Date: 20120822
  Receipt Date: 20120920
  Transmission Date: 20130627
  Serious: Yes (Other)
  Sender: FDA-Public Use
  Company Number: US-PFIZER INC-2012201990

PATIENT
  Age: 48 Year
  Sex: Female

DRUGS (22)
  1. LYRICA [Suspect]
     Dosage: 150 mg, 2x/day (One pill by mouth twice a day)
     Route: 048
  2. METHOCARBAMOL [Concomitant]
     Dosage: 500 mg, 4x/day (Take 2 Tablets by mouth 4 times a day)
     Route: 048
  3. BUTALBITAL/CAFFEINE/PARACETAMOL [Concomitant]
     Dosage: 50-325-40 Mg PO Tabs (Take 1 or 2 Tablets every 6 hours as needed)
     Route: 048
  4. CYMBALTA [Concomitant]
     Dosage: 60 mg, 1x/day (CPEP: One pill by mouth once a day, do not cut, crush or chew)
     Route: 048
  5. CYMBALTA [Concomitant]
     Dosage: 30 mg, (CPEP: Three pills by mouth once a day, do not cut, crush or chew)
     Route: 048
  6. LASIX [Concomitant]
     Dosage: 80 mg, 1 Daily
     Route: 048
  7. LASIX [Concomitant]
     Dosage: 40 mg, 1 Daily
     Route: 048
  8. GLUCOPHAGE [Concomitant]
     Dosage: 1000 mg, 2x/day (1 pill twice daily)
     Route: 048
  9. AMARYL [Concomitant]
     Dosage: 2 mg, 2x/day (1 pill twice daily)
     Route: 048
  10. VITAMIN D [Concomitant]
     Dosage: 2000 Unit PO Tabs, Daily
     Route: 048
  11. KRILL OIL [Concomitant]
     Dosage: 300 mg, Daily
     Route: 048
  12. PROVENTIL INHALER [Concomitant]
     Dosage: 2 inhalations every 4-6 hours as needed
  13. POTASSIUM CHLORIDE [Concomitant]
     Dosage: 20 mEq, 3x/day (2 tablets three times daily)
     Route: 048
  14. SENOKOT [Concomitant]
     Dosage: 8.6 mg, 2x/day (2 Tablets twice daily)
     Route: 048
  15. DOCUSATE SODIUM [Concomitant]
     Dosage: 100 mg, 2x/day (1 Tablet twice daily)
     Route: 048
  16. ROBAXIN [Concomitant]
     Dosage: 500 mg, 4x/day (2 Tablets four times daily)
     Route: 048
  17. XANAX [Concomitant]
     Dosage: 0.5 mg, 3x/day (1 Tablet three times daily)
     Route: 048
  18. ALDACTONE 100 [Concomitant]
     Dosage: 100 mg, 2x/day (1 tablet twice daily)
     Route: 048
  19. SYNTHROID [Concomitant]
     Dosage: 200 ug, 1 Tablet Daily
  20. PROCHLORPERAZINE MALEATE [Concomitant]
     Dosage: 10 mg, 4x/day (1 Tablet four times daily as needed)
     Route: 048
  21. PERCOCET [Concomitant]
     Dosage: 10-650 Mg 1 tablet four times daily as needed
     Route: 048
  22. FIORICET [Concomitant]
     Indication: HEADACHE
     Dosage: 50-325-40 Mg PO Tabs: One pill by mouth every 4 hours as needed
     Route: 048

REACTIONS (7)
  - Cognitive disorder [Unknown]
  - Pain [Unknown]
  - Myalgia [Unknown]
  - Myositis [Unknown]
  - Arthralgia [Unknown]
  - Sleep disorder [Unknown]
  - Paraesthesia [Unknown]
